FAERS Safety Report 7456420-4 (Version None)
Quarter: 2011Q2

REPORT INFORMATION
  Report Type: 
  Country: None (occurrence: None)
  Receive Date: 20110426
  Receipt Date: 20110411
  Transmission Date: 20111010
  Serious: Yes (Death, Hospitalization, Other)
  Sender: FDA-Public Use
  Company Number: 20110241

PATIENT
  Sex: Female
  Weight: 45 kg

DRUGS (6)
  1. BREWERS YEAST [Concomitant]
  2. VENOFER [Suspect]
     Indication: IRON DEFICIENCY
     Dosage: 1 AMPOULE INTRAVENOUS
     Route: 042
     Dates: start: 20110304, end: 20110304
  3. VENOFER [Suspect]
     Indication: IRON DEFICIENCY
     Dosage: INTRAVENOUS DRIP
     Route: 041
     Dates: start: 20110312, end: 20110312
  4. ROYAL JELLY(APIS MELLIFER L) [Concomitant]
  5. WHEAT GERM (OCTACOSANOL) [Concomitant]
  6. CONCENTRATED B COMPLEX [Concomitant]

REACTIONS (8)
  - CEREBRAL HAEMORRHAGE [None]
  - BRAIN OEDEMA [None]
  - FALL [None]
  - GASTRIC CANCER [None]
  - OEDEMA PERIPHERAL [None]
  - HAEMATOMA [None]
  - INCORRECT DRUG ADMINISTRATION DURATION [None]
  - HYPERTENSION [None]
